FAERS Safety Report 6009917-8 (Version None)
Quarter: 2008Q4

REPORT INFORMATION
  Report Type: 
  Country: None (occurrence: None)
  Receive Date: 20081217
  Receipt Date: 20081217
  Transmission Date: 20090506
  Serious: No
  Sender: FDA-Public Use
  Company Number: None

PATIENT
  Sex: Male
  Weight: 74.8435 kg

DRUGS (1)
  1. DELESTROGEN [Suspect]
     Indication: TRANS-SEXUALISM
     Dosage: 40MG/1ML LESS 1 WK INTRAMUSCULAR
     Route: 030
     Dates: start: 20080901, end: 20081201

REACTIONS (2)
  - DRUG EFFECT DECREASED [None]
  - PRODUCT QUALITY ISSUE [None]
